FAERS Safety Report 5845575-0 (Version None)
Quarter: 2008Q3

REPORT INFORMATION
  Report Type: 
  Country: None (occurrence: None)
  Receive Date: 20080814
  Receipt Date: 20080805
  Transmission Date: 20090109
  Serious: Yes (Other)
  Sender: FDA-Public Use
  Company Number: GB-ASTRAZENECA-2008GB01529

PATIENT
  Sex: Male

DRUGS (8)
  1. XYLOCAINE TOPICAL FILM [Suspect]
     Indication: BRONCHOSCOPY
     Route: 061
     Dates: start: 20080801
  2. XYLOCAINE TOPICAL FILM [Suspect]
     Indication: BRONCHOSCOPY
     Route: 061
     Dates: start: 20080801
  3. FENTANYL-25 [Suspect]
     Indication: BRONCHOSCOPY
     Dates: start: 20080801
  4. TRAMADOL HCL [Concomitant]
  5. CEFUROXIME [Concomitant]
  6. PARACETAMOL [Concomitant]
  7. FOLIC ACID [Concomitant]
  8. CLARITHROMYCIN [Concomitant]

REACTIONS (7)
  - BLOOD PRESSURE DECREASED [None]
  - DELUSION [None]
  - HYPERHIDROSIS [None]
  - HYPERVENTILATION [None]
  - PANIC ATTACK [None]
  - STATUS ASTHMATICUS [None]
  - TACHYCARDIA [None]
